FAERS Safety Report 8758208 (Version 1)
Quarter: 2012Q4

REPORT INFORMATION
  Report Type: 
  Country: DE (occurrence: NZ)
  Receive Date: 20120828
  Receipt Date: 20120828
  Transmission Date: 20130627
  Serious: Yes (Other)
  Sender: FDA-Public Use
  Company Number: DE-ASTRAZENECA-2012SE64738

PATIENT
  Age: 46 Year
  Sex: Female

DRUGS (7)
  1. OMEPRAZOLE [Suspect]
     Route: 048
  2. NAPROXEN SODIUM [Suspect]
  3. ESTRADIOL [Suspect]
  4. VARENICLINE [Suspect]
     Indication: EX-TOBACCO USER
     Dosage: at day 10
  5. THYROXINE [Suspect]
  6. NORTRIPTYLINE [Suspect]
  7. UNSPECIFIED INGREDIENT [Suspect]

REACTIONS (2)
  - Haemoptysis [Recovered/Resolved]
  - Dysphonia [Recovered/Resolved]
